FAERS Safety Report 13895867 (Version 1)
Quarter: 2017Q3

REPORT INFORMATION
  Report Type: Spontaneous
  Country: US (occurrence: None)
  Receive Date: 20170817
  Receipt Date: 20170817
  Transmission Date: 20171127
  Serious: No
  Sender: FDA-Public Use
  Company Number: None

PATIENT
  Age: 83 Year
  Sex: Female

DRUGS (19)
  1. DOCUSATE [Concomitant]
     Active Substance: DOCUSATE
  2. METOPROLOL TARTRATE. [Concomitant]
     Active Substance: METOPROLOL TARTRATE
  3. SENNA [Concomitant]
     Active Substance: SENNA LEAF\SENNOSIDES\SENNOSIDES A AND B
  4. ALPRAZOLAM. [Concomitant]
     Active Substance: ALPRAZOLAM
  5. CLONAZEPAM. [Concomitant]
     Active Substance: CLONAZEPAM
  6. ISOSORBIDE MONONITRATE. [Concomitant]
     Active Substance: ISOSORBIDE MONONITRATE
  7. FERROUS SULFATE. [Concomitant]
     Active Substance: FERROUS SULFATE
  8. FLUTIOASONE [Concomitant]
  9. LEVETIRACETAM. [Concomitant]
     Active Substance: LEVETIRACETAM
  10. IPRATROPIUM [Concomitant]
     Active Substance: IPRATROPIUM
  11. POLYETHYLENE GLYCOL 3350. [Concomitant]
     Active Substance: POLYETHYLENE GLYCOL 3350
  12. ATORVASTATIN [Concomitant]
     Active Substance: ATORVASTATIN
  13. SALMETEROL [Concomitant]
     Active Substance: SALMETEROL
  14. HEPARIN [Suspect]
     Active Substance: HEPARIN SODIUM
     Indication: PULMONARY EMBOLISM
     Dosage: 9.5 UNITS/KG/HR, CONTINUOUS, IV
     Route: 042
     Dates: start: 20170623, end: 20170628
  15. CITALOPRAM [Concomitant]
     Active Substance: CITALOPRAM HYDROBROMIDE
  16. LISINOPRIL. [Concomitant]
     Active Substance: LISINOPRIL
  17. TIOTROPIUM [Concomitant]
     Active Substance: TIOTROPIUM
  18. AMIODARONE [Concomitant]
     Active Substance: AMIODARONE
  19. LORATADINE. [Concomitant]
     Active Substance: LORATADINE

REACTIONS (3)
  - Haematochezia [None]
  - Haemoglobin decreased [None]
  - Epistaxis [None]

NARRATIVE: CASE EVENT DATE: 20170623
